FAERS Safety Report 10743580 (Version 3)
Quarter: 2015Q2

REPORT INFORMATION
  Report Type: Report from Study
  Country: DK (occurrence: DK)
  Receive Date: 20150128
  Receipt Date: 20150521
  Transmission Date: 20150821
  Serious: Yes (Death, Life-Threatening, Hospitalization, Other)
  Sender: FDA-Public Use
  Company Number: PHHO2013DK015161

PATIENT
  Age: 68 Year
  Sex: Male
  Weight: 112 kg

DRUGS (13)
  1. SPIRONOLACTONE. [Concomitant]
     Active Substance: SPIRONOLACTONE
     Indication: PRODUCT USED FOR UNKNOWN INDICATION
     Dosage: UNK
     Route: 065
  2. BLINDED ALISKIREN [Suspect]
     Active Substance: ALISKIREN
     Indication: CARDIAC FAILURE
     Dosage: CODE NOT BROKEN
     Route: 048
     Dates: end: 20130322
  3. BLINDED ENALAPRIL [Suspect]
     Active Substance: ENALAPRIL
     Indication: CARDIAC FAILURE
     Dosage: CODE NOT BROKEN
     Route: 048
     Dates: end: 20130322
  4. OLANZAPINE. [Suspect]
     Active Substance: OLANZAPINE
     Indication: ANXIETY
     Route: 065
  5. BUMETANIDE. [Suspect]
     Active Substance: BUMETANIDE
     Indication: PRODUCT USED FOR UNKNOWN INDICATION
     Dosage: 2 MG, QID
     Route: 042
     Dates: start: 20131010
  6. BUMETANIDE. [Suspect]
     Active Substance: BUMETANIDE
     Dosage: UNK
     Route: 065
     Dates: start: 20141110
  7. TEMESTA [Suspect]
     Active Substance: LORAZEPAM
     Indication: ANXIETY
     Route: 065
  8. RAMIPRIL. [Concomitant]
     Active Substance: RAMIPRIL
     Indication: CARDIAC FAILURE
     Dosage: 1.25 MG, BID (1.25 MG X 2)
     Route: 065
     Dates: start: 20130918, end: 20131010
  9. WARFARIN [Concomitant]
     Active Substance: WARFARIN
     Indication: ATRIAL FIBRILLATION
     Dosage: ON DEMAND
     Route: 065
     Dates: start: 199310, end: 20131010
  10. BLINDED NO TREATMENT RECEIVED [Suspect]
     Active Substance: UNSPECIFIED INGREDIENT
     Indication: CARDIAC FAILURE
     Dosage: CODE NOT BROKEN
     Route: 048
     Dates: end: 20130322
  11. SPIRONOLACTONE. [Concomitant]
     Active Substance: SPIRONOLACTONE
     Dosage: UNK
     Route: 065
     Dates: end: 20141010
  12. BUMETANIDE. [Suspect]
     Active Substance: BUMETANIDE
     Dosage: UNK
     Route: 048
  13. RAMIPRIL. [Concomitant]
     Active Substance: RAMIPRIL
     Dosage: UNK
     Route: 065
     Dates: start: 20131011, end: 20141010

REACTIONS (19)
  - Cardiac failure [Recovered/Resolved]
  - Ventricular tachycardia [Recovered/Resolved]
  - Fatigue [Recovered/Resolved]
  - Cardiac failure [Recovered/Resolved]
  - Dehydration [Recovered/Resolved]
  - Cardiomyopathy [Recovered/Resolved]
  - Cardiac failure chronic [Recovered/Resolved]
  - Malaise [Recovered/Resolved]
  - Anxiety [Recovered/Resolved]
  - Injury [Recovered/Resolved]
  - Dyspnoea [Recovered/Resolved]
  - Anxiety [Recovered/Resolved]
  - Cardiac failure [Recovered/Resolved]
  - Anxiety [Recovering/Resolving]
  - Overdose [Recovered/Resolved]
  - Ventricular tachycardia [Recovered/Resolved]
  - Malaise [Recovered/Resolved]
  - Cardiac death [Fatal]
  - Anxiety [Recovered/Resolved]

NARRATIVE: CASE EVENT DATE: 20130417
